FAERS Safety Report 6835469-6 (Version None)
Quarter: 2010Q3

REPORT INFORMATION
  Report Type: 
  Country: None (occurrence: None)
  Receive Date: 20100713
  Receipt Date: 20100628
  Transmission Date: 20110219
  Serious: Yes (Other)
  Sender: FDA-Public Use
  Company Number: PHHY2010PL40648

PATIENT
  Sex: Male
  Weight: 72 kg

DRUGS (3)
  1. EXTAVIA [Suspect]
     Indication: MULTIPLE SCLEROSIS
     Dosage: 250 ?G/8 MLN UNITS
     Route: 058
     Dates: start: 20100102, end: 20100601
  2. DICLORATIO UNO [Concomitant]
     Dosage: UNK
     Route: 048
     Dates: start: 20100201
  3. POLPRAZOL [Concomitant]
     Dosage: UNK
     Route: 048
     Dates: start: 20100301

REACTIONS (6)
  - INJECTION SITE ERYTHEMA [None]
  - INJECTION SITE NECROSIS [None]
  - INJECTION SITE PAIN [None]
  - LIVIDITY [None]
  - SKIN LESION [None]
  - WRONG TECHNIQUE IN DRUG USAGE PROCESS [None]
